FAERS Safety Report 11082047 (Version 1)
Quarter: 2015Q2

REPORT INFORMATION
  Report Type: Report from Study
  Country: ES (occurrence: ES)
  Receive Date: 20150501
  Receipt Date: 20150501
  Transmission Date: 20150821
  Serious: Yes (Hospitalization)
  Sender: FDA-Public Use
  Company Number: ES-SA-2015SA053733

PATIENT
  Age: 71 Year
  Sex: Male

DRUGS (5)
  1. KONAKION [Concomitant]
     Active Substance: PHYTONADIONE
     Dosage: 10 MG, 1 DRINKABLE AMPOULE
  2. SEGURIL [Suspect]
     Active Substance: FUROSEMIDE
     Indication: HEPATIC CIRRHOSIS
     Dosage: 40 MG AL DIA
     Route: 048
     Dates: start: 201405, end: 20140710
  3. HYDREA [Concomitant]
     Active Substance: HYDROXYUREA
     Dosage: TAKEN ON MEAL
  4. ZYLORIC [Concomitant]
     Active Substance: ALLOPURINOL
  5. ALDACTONE [Suspect]
     Active Substance: SPIRONOLACTONE
     Indication: HEPATIC CIRRHOSIS
     Dosage: 50 MG AL DIA
     Route: 048
     Dates: start: 201405, end: 20140710

REACTIONS (5)
  - Hyponatraemia [Recovering/Resolving]
  - Acute kidney injury [Recovering/Resolving]
  - Weight decreased [Unknown]
  - Hyperkalaemia [Recovering/Resolving]
  - Metabolic acidosis [Unknown]

NARRATIVE: CASE EVENT DATE: 2014
